FAERS Safety Report 14295376 (Version 6)
Quarter: 2018Q2

REPORT INFORMATION
  Report Type: Spontaneous
  Country: US (occurrence: US)
  Receive Date: 20171218
  Receipt Date: 20180404
  Transmission Date: 20180711
  Serious: Yes (Other)
  Sender: FDA-Public Use
  Company Number: US-PFIZER INC-2017534740

PATIENT
  Age: 64 Year
  Sex: Female
  Weight: 58 kg

DRUGS (1)
  1. ATROPINE SULFATE/DIPHENOXYLATE HYDROCHLORIDE [Suspect]
     Active Substance: ATROPINE SULFATE\DIPHENOXYLATE HYDROCHLORIDE
     Indication: DIARRHOEA
     Dosage: 2.5 MG, AS NEEDED (2.5 MG TABLETS, TAKE 1 TABLET BY MOUTH IN THE MORNING)
     Route: 048
     Dates: start: 20170501, end: 201705

REACTIONS (3)
  - Product use issue [Unknown]
  - Colitis microscopic [Unknown]
  - Weight decreased [Unknown]

NARRATIVE: CASE EVENT DATE: 20170531
